FAERS Safety Report 11830365 (Version 3)
Quarter: 2015Q4

REPORT INFORMATION
  Report Type: Spontaneous
  Country: US (occurrence: US)
  Receive Date: 20151214
  Receipt Date: 20151214
  Transmission Date: 20160305
  Serious: Yes (Disabling)
  Sender: FDA-Public Use
  Company Number: US-JNJFOC-20151109710

PATIENT
  Age: 52 Year
  Sex: Male
  Weight: 65.77 kg

DRUGS (5)
  1. LEVAQUIN [Suspect]
     Active Substance: LEVOFLOXACIN
     Indication: SINUSITIS
     Route: 065
     Dates: start: 20090301, end: 20090307
  2. LEVAQUIN [Suspect]
     Active Substance: LEVOFLOXACIN
     Indication: URINARY TRACT INFECTION
     Route: 065
     Dates: start: 20090301, end: 20090307
  3. LEVAQUIN [Suspect]
     Active Substance: LEVOFLOXACIN
     Indication: INFLUENZA
     Route: 065
     Dates: start: 20090301, end: 20090307
  4. AVALOX [Suspect]
     Active Substance: MOXIFLOXACIN HYDROCHLORIDE
     Indication: OROPHARYNGEAL PAIN
     Route: 065
     Dates: start: 20070301, end: 20070304
  5. CIPROFLOXACIN. [Suspect]
     Active Substance: CIPROFLOXACIN
     Indication: PRODUCT USED FOR UNKNOWN INDICATION
     Route: 065

REACTIONS (7)
  - Gait disturbance [Unknown]
  - Neuropathy peripheral [Unknown]
  - Bone pain [Recovering/Resolving]
  - Asthenia [Unknown]
  - Muscle spasms [Recovering/Resolving]
  - Peripheral coldness [Unknown]
  - Hypoaesthesia [Unknown]
